FAERS Safety Report 7689947-0 (Version None)
Quarter: 2011Q3

REPORT INFORMATION
  Report Type: 
  Country: None (occurrence: None)
  Receive Date: 20110818
  Receipt Date: 20110810
  Transmission Date: 20111222
  Serious: No
  Sender: FDA-Public Use
  Company Number: US-BIOGENIDEC-2011BI030392

PATIENT
  Age: 29 Year
  Sex: Female

DRUGS (1)
  1. TYSABRI [Suspect]
     Indication: MULTIPLE SCLEROSIS
     Route: 042
     Dates: start: 20110318

REACTIONS (11)
  - BLEPHAROSPASM [None]
  - MOBILITY DECREASED [None]
  - HEADACHE [None]
  - MUSCULOSKELETAL DISORDER [None]
  - BONE PAIN [None]
  - PRURITUS [None]
  - HYPERHIDROSIS [None]
  - FATIGUE [None]
  - MUSCLE SPASMS [None]
  - NAUSEA [None]
  - IRRITABILITY [None]
